FAERS Safety Report 11616510 (Version 1)
Quarter: 2015Q4

REPORT INFORMATION
  Report Type: Report from Study
  Country: US (occurrence: US)
  Receive Date: 20151009
  Receipt Date: 20151009
  Transmission Date: 20160304
  Serious: No
  Sender: FDA-Public Use
  Company Number: GXBR2015US002076

PATIENT
  Age: 61 Year
  Sex: Female

DRUGS (12)
  1. FISH OIL [Concomitant]
     Active Substance: FISH OIL
     Dosage: UNK DF, UNK
  2. GLATOPA [Suspect]
     Active Substance: GLATIRAMER ACETATE
     Indication: MULTIPLE SCLEROSIS
     Dosage: 20 MG, QD
     Route: 065
     Dates: start: 20150905
  3. WELLBUTRIN [Concomitant]
     Active Substance: BUPROPION HYDROCHLORIDE
     Dosage: UNK DF, UNK
  4. SINGULAIR [Concomitant]
     Active Substance: MONTELUKAST SODIUM
     Dosage: UNK DF, UNK
  5. ALLEGRA [Concomitant]
     Active Substance: FEXOFENADINE HYDROCHLORIDE
     Dosage: UNK DF, UNK
  6. LEXAPRO [Concomitant]
     Active Substance: ESCITALOPRAM OXALATE
     Dosage: UNK DF, UNK
  7. LAMICTAL [Concomitant]
     Active Substance: LAMOTRIGINE
     Dosage: UNK DF, UNK
  8. VITAMIN D [Concomitant]
     Active Substance: CHOLECALCIFEROL
     Dosage: UNK DF, UNK
  9. TYLENOL [Concomitant]
     Active Substance: ACETAMINOPHEN
     Dosage: UNK DF, UNK
  10. CALCIUM [Concomitant]
     Active Substance: CALCIUM
     Dosage: UNK DF, UNK
  11. MODAFINIL. [Concomitant]
     Active Substance: MODAFINIL
     Dosage: UNK DF, UNK
  12. FOLIC ACID. [Concomitant]
     Active Substance: FOLIC ACID

REACTIONS (2)
  - Injection site pain [Not Recovered/Not Resolved]
  - Incorrect dose administered [Unknown]

NARRATIVE: CASE EVENT DATE: 20150909
